FAERS Safety Report 16539734 (Version 1)
Quarter: 2019Q3

REPORT INFORMATION
  Report Type: Spontaneous
  Country: US (occurrence: US)
  Receive Date: 20190708
  Receipt Date: 20190708
  Transmission Date: 20191004
  Serious: No
  Sender: FDA-Public Use
  Company Number: US-PFIZER INC-2019290024

PATIENT
  Age: 56 Year
  Sex: Male
  Weight: 63.5 kg

DRUGS (3)
  1. SILDENAFIL CITRATE. [Suspect]
     Active Substance: SILDENAFIL CITRATE
     Dosage: 40 MG, 3X/DAY, (20 MG, THREE TIMES DAILY)
     Route: 048
     Dates: start: 20190420
  2. MILRINONE [Concomitant]
     Active Substance: MILRINONE
     Indication: CARDIAC DISORDER
     Dosage: UNK (4.9ML AN HOUR AT 0.25MCG/KG/MIN AND BAG VOLUME IS 130ML)
     Dates: start: 201904
  3. SILDENAFIL CITRATE. [Suspect]
     Active Substance: SILDENAFIL CITRATE
     Dosage: 20 MG, 3X/DAY

REACTIONS (2)
  - Prescribed overdose [Unknown]
  - Drug ineffective [Unknown]

NARRATIVE: CASE EVENT DATE: 20190621
